FAERS Safety Report 21234871 (Version 1)
Quarter: 2022Q3

REPORT INFORMATION
  Report Type: Spontaneous
  Country: US (occurrence: US)
  Receive Date: 20220820
  Receipt Date: 20220820
  Transmission Date: 20221027
  Serious: Yes (Hospitalization, Other)
  Sender: FDA-Public Use
  Company Number: US-AMGEN-USASP2022139394

PATIENT
  Age: 81 Year
  Sex: Male

DRUGS (3)
  1. NEULASTA [Suspect]
     Active Substance: PEGFILGRASTIM
     Indication: Plasma cell myeloma
     Dosage: 6 MILLIGRAM
     Route: 065
     Dates: start: 202111
  2. NEULASTA [Suspect]
     Active Substance: PEGFILGRASTIM
     Indication: Soft tissue sarcoma
     Dosage: 6 MILLIGRAM
     Route: 065
     Dates: start: 20220810
  3. GEMCITABINE [Concomitant]
     Active Substance: GEMCITABINE
     Dosage: UNK
     Route: 065
     Dates: start: 20211121

REACTIONS (3)
  - Cerebrovascular accident [Unknown]
  - Motor dysfunction [Unknown]
  - Pneumonitis [Unknown]

NARRATIVE: CASE EVENT DATE: 20220301
